FAERS Safety Report 24761022 (Version 1)
Quarter: 2024Q4

REPORT INFORMATION
  Report Type: Spontaneous
  Country: CA (occurrence: CA)
  Receive Date: 20241220
  Receipt Date: 20241220
  Transmission Date: 20250114
  Serious: Yes (Other)
  Sender: BIOMARIN
  Company Number: CA-BIOMARINAP-CA-2024-162626

PATIENT

DRUGS (1)
  1. BRINEURA [Suspect]
     Active Substance: CERLIPONASE ALFA
     Indication: Neuronal ceroid lipofuscinosis
     Dosage: 300 MILLIGRAM, QOW
     Route: 020

REACTIONS (7)
  - Pneumonia [Unknown]
  - Fatigue [Unknown]
  - Productive cough [Unknown]
  - Rhinorrhoea [Unknown]
  - Cyanosis [Recovered/Resolved]
  - Vomiting [Unknown]
  - Nasal congestion [Unknown]

NARRATIVE: CASE EVENT DATE: 20241201
